FAERS Safety Report 5984042-0 (Version None)
Quarter: 2008Q4

REPORT INFORMATION
  Report Type: 
  Country: None (occurrence: None)
  Receive Date: 20081208
  Receipt Date: 20080818
  Transmission Date: 20090506
  Serious: Yes (Other)
  Sender: FDA-Public Use
  Company Number: US-AMGEN-QUU302327

PATIENT
  Sex: Female

DRUGS (2)
  1. ENBREL [Suspect]
     Indication: RHEUMATOID ARTHRITIS
     Route: 058
     Dates: start: 19990701
  2. LODINE [Concomitant]
     Dates: end: 20080101

REACTIONS (4)
  - ARTHROPOD BITE [None]
  - BLOOD CREATININE DECREASED [None]
  - CELLULITIS [None]
  - THROMBOSIS [None]
